FAERS Safety Report 16290950 (Version 3)
Quarter: 2019Q3

REPORT INFORMATION
  Report Type: Report from Study
  Country: CA (occurrence: CA)
  Receive Date: 20190509
  Receipt Date: 20190916
  Transmission Date: 20191004
  Serious: Yes (Other)
  Sender: FDA-Public Use
  Company Number: CA-JNJFOC-20190306046

PATIENT
  Age: 59 Year
  Sex: Male
  Weight: 80.74 kg

DRUGS (2)
  1. STELARA [Suspect]
     Active Substance: USTEKINUMAB
     Dosage: STRENGTH = 90 MG
     Route: 058
     Dates: start: 20180725
  2. STELARA [Suspect]
     Active Substance: USTEKINUMAB
     Indication: CROHN^S DISEASE
     Dosage: STRENGTH = 90 MG
     Route: 058
     Dates: start: 20180529

REACTIONS (9)
  - Cystitis [Unknown]
  - Off label use [Unknown]
  - Product use issue [Unknown]
  - Hepatic enzyme increased [Unknown]
  - Nasopharyngitis [Recovered/Resolved]
  - Pneumonia [Recovered/Resolved]
  - Nephrolithiasis [Not Recovered/Not Resolved]
  - Asthma [Recovered/Resolved]
  - Orchitis [Unknown]

NARRATIVE: CASE EVENT DATE: 20180725
